FAERS Safety Report 5817455-8 (Version None)
Quarter: 2008Q3

REPORT INFORMATION
  Report Type: 
  Country: None (occurrence: None)
  Receive Date: 20080715
  Receipt Date: 20080703
  Transmission Date: 20090109
  Serious: Yes (Hospitalization)
  Sender: FDA-Public Use
  Company Number: 2008JP001005

PATIENT
  Age: 49 Year
  Sex: Female
  Weight: 58 kg

DRUGS (10)
  1. TACROLIMUS [Suspect]
     Indication: LUPUS NEPHRITIS
     Dosage: 2 MG, /D, ORAL
     Route: 048
     Dates: start: 20080125, end: 20080219
  2. SULFAMETHOXAZOLE AND TRIMETHOPRIM [Suspect]
     Dosage: 8 DF, WEEKLY, ORAL
     Route: 048
     Dates: start: 20080111, end: 20080219
  3. PREDNISONE [Concomitant]
  4. PROTECADIN    (LAFUTIDINE) [Concomitant]
  5. ENALAPRIL MALEATE [Concomitant]
  6. VITANEURIN (THIAMINE HYDROCHLORIDE) [Concomitant]
  7. HICEE (ASCORBIC ACID) [Concomitant]
  8. LASIX [Concomitant]
  9. ADALAT ORODISPERSIBLE CR TABLET [Concomitant]
  10. ZOLPIDEM TARTRATE [Concomitant]

REACTIONS (1)
  - PANCYTOPENIA [None]
